FAERS Safety Report 7161393-8 (Version None)
Quarter: 2010Q4

REPORT INFORMATION
  Report Type: 
  Country: None (occurrence: None)
  Receive Date: 20101123
  Receipt Date: 20100826
  Transmission Date: 20110411
  Serious: No
  Sender: FDA-Public Use
  Company Number: 8054862

PATIENT
  Sex: Female

DRUGS (5)
  1. CERTOLIZUMAB PEGOL [Suspect]
     Indication: CROHN'S DISEASE
     Dosage: (400 MG 1X/4 MONTHS SUBCUTANEOUS), (400 MG 1X/MONTH SUBCUTANEOUS), (400 MG 1X/MONTH SUBCUTANEOUS)
     Route: 058
     Dates: start: 20090115
  2. CERTOLIZUMAB PEGOL [Suspect]
     Indication: CROHN'S DISEASE
     Dosage: (400 MG 1X/4 MONTHS SUBCUTANEOUS), (400 MG 1X/MONTH SUBCUTANEOUS), (400 MG 1X/MONTH SUBCUTANEOUS)
     Route: 058
     Dates: start: 20090730
  3. CERTOLIZUMAB PEGOL [Suspect]
  4. CERTOLIZUMAB PEGOL [Suspect]
  5. CELEXA [Concomitant]

REACTIONS (6)
  - APATHY [None]
  - BLOOD PRESSURE DECREASED [None]
  - DEPRESSION [None]
  - FATIGUE [None]
  - SLEEP DISORDER [None]
  - SOMNOLENCE [None]
